FAERS Safety Report 6280270-8 (Version None)
Quarter: 2009Q3

REPORT INFORMATION
  Report Type: 
  Country: None (occurrence: None)
  Receive Date: 20090723
  Receipt Date: 20090717
  Transmission Date: 20100115
  Serious: Yes (Other)
  Sender: FDA-Public Use
  Company Number: GB-ASTRAZENECA-2009SE05238

PATIENT
  Age: 86 Year
  Sex: Male
  Weight: 72.5 kg

DRUGS (6)
  1. OMEPRAZOLE [Suspect]
     Indication: DYSPEPSIA
     Route: 048
     Dates: start: 20090505, end: 20090514
  2. AMLODIPINE [Concomitant]
     Indication: HYPERTENSION
     Route: 048
     Dates: start: 20090205
  3. ASPIRIN [Concomitant]
     Route: 048
     Dates: start: 20060901
  4. ACETAMINOPHEN W/ CODEINE [Concomitant]
     Indication: PAIN
     Route: 048
     Dates: start: 20060101
  5. HYDROXOCOBALAMIN [Concomitant]
     Route: 030
  6. RAMIPRIL [Concomitant]
     Indication: HYPERTENSION
     Route: 048
     Dates: start: 20060710

REACTIONS (2)
  - LIP SWELLING [None]
  - SWELLING FACE [None]
